FAERS Safety Report 4786806-8 (Version None)
Quarter: 2005Q4

REPORT INFORMATION
  Report Type: 
  Country: None (occurrence: None)
  Receive Date: 20051004
  Receipt Date: 20050928
  Transmission Date: 20060501
  Serious: Yes (Other)
  Sender: FDA-Public Use
  Company Number: US-JNJFOC-20051000022

PATIENT
  Age: 55 Year
  Sex: Female

DRUGS (3)
  1. RISPERDAL [Suspect]
     Indication: BIPOLAR DISORDER
     Route: 048
     Dates: start: 20020101, end: 20050101
  2. ATIVAN [Concomitant]
  3. LEXAPRO [Concomitant]

REACTIONS (2)
  - BREAST MASS [None]
  - DEPRESSION [None]
